FAERS Safety Report 12970198 (Version 1)
Quarter: 2016Q4

REPORT INFORMATION
  Report Type: Spontaneous
  Country: FR (occurrence: FR)
  Receive Date: 20161123
  Receipt Date: 20161123
  Transmission Date: 20170207
  Serious: Yes (Hospitalization)
  Sender: FDA-Public Use
  Company Number: FR-ASTRAZENECA-2016SF23526

PATIENT
  Sex: Male

DRUGS (6)
  1. BETASERC [Concomitant]
     Active Substance: BETAHISTINE
     Dosage: 24MG BOTH IN THE MORNING AND AT NIGHT
     Route: 048
  2. METFORMIN [Concomitant]
     Active Substance: METFORMIN HYDROCHLORIDE
     Dosage: 850MG THREE TIMES A DAY (MORNING, NOON AND NIGHT)
     Route: 048
  3. ONGLYZA [Suspect]
     Active Substance: SAXAGLIPTIN HYDROCHLORIDE
     Indication: DIABETES MELLITUS
     Route: 048
     Dates: start: 2015, end: 20161006
  4. APROVEL [Concomitant]
     Active Substance: IRBESARTAN
     Indication: HYPERTENSION
     Dosage: 150MG IN THE MORNING
     Route: 048
  5. MOPRAL [Concomitant]
     Active Substance: OMEPRAZOLE SODIUM
     Dosage: 20MG IN THE MORNING
     Route: 048
  6. LIPANTHYL [Concomitant]
     Active Substance: FENOFIBRATE
     Route: 048

REACTIONS (2)
  - Liver disorder [Unknown]
  - Pancreatitis acute [Recovering/Resolving]
